FAERS Safety Report 25890602 (Version 1)
Quarter: 2025Q4

REPORT INFORMATION
  Report Type: Spontaneous
  Country: US (occurrence: US)
  Receive Date: 20251007
  Receipt Date: 20251007
  Transmission Date: 20260118
  Serious: No
  Sender: AMARIN
  Company Number: US-Amarin Pharma  Inc-2025AMR000554

PATIENT
  Age: 55 Year
  Sex: Female

DRUGS (3)
  1. VASCEPA [Suspect]
     Active Substance: ICOSAPENT ETHYL
     Indication: Cardiac disorder
     Dates: start: 2015
  2. VASCEPA [Suspect]
     Active Substance: ICOSAPENT ETHYL
     Dosage: UNKNOWN, RESTARTED
  3. ATORVASTATIN [Concomitant]
     Active Substance: ATORVASTATIN
     Indication: Product used for unknown indication

REACTIONS (6)
  - Overdose [Unknown]
  - Poor quality product administered [Unknown]
  - Product storage error [Unknown]
  - Therapy interrupted [Unknown]
  - Product physical issue [Unknown]
  - Product odour abnormal [Unknown]

NARRATIVE: CASE EVENT DATE: 20150101
